FAERS Safety Report 5891566-3 (Version None)
Quarter: 2008Q3

REPORT INFORMATION
  Report Type: 
  Country: None (occurrence: None)
  Receive Date: 20080922
  Receipt Date: 20070119
  Transmission Date: 20090109
  Serious: Yes (Other)
  Sender: FDA-Public Use
  Company Number: IT-ROCHE-570958

PATIENT
  Sex: Male

DRUGS (2)
  1. PEGASYS [Suspect]
     Route: 065
     Dates: start: 20061026, end: 20070515
  2. REBETOL [Suspect]
     Route: 065
     Dates: start: 20061026, end: 20070515

REACTIONS (1)
  - SYNCOPE [None]
